FAERS Safety Report 7063163-8 (Version None)
Quarter: 2010Q4

REPORT INFORMATION
  Report Type: 
  Country: None (occurrence: None)
  Receive Date: 20101026
  Receipt Date: 20100521
  Transmission Date: 20110411
  Serious: No
  Sender: FDA-Public Use
  Company Number: US-PFIZER INC-2010064479

PATIENT
  Sex: Female
  Weight: 65.76 kg

DRUGS (1)
  1. LIPITOR [Suspect]
     Indication: MYALGIA
     Dosage: UNK MG, UNK
     Route: 048

REACTIONS (3)
  - DECREASED APPETITE [None]
  - FEELING ABNORMAL [None]
  - INSOMNIA [None]
